FAERS Safety Report 4510663-8 (Version None)
Quarter: 2004Q4

REPORT INFORMATION
  Report Type: 
  Country: None (occurrence: None)
  Receive Date: 20041123
  Receipt Date: 20041109
  Transmission Date: 20050328
  Serious: Yes (Other)
  Sender: FDA-Public Use
  Company Number: 2004S1003347

PATIENT
  Age: 30 Year
  Sex: Male
  Weight: 72.1219 kg

DRUGS (1)
  1. EXTENDED PHENYTOIN SODIUM [Suspect]
     Indication: CONVULSION
     Dosage: 100MG G AM, 200MG Q HS AND 300MG Q HS MON, WED, FRI, THEN ORAL
     Route: 048
     Dates: start: 20040227

REACTIONS (3)
  - ANTIDEPRESSANT DRUG LEVEL BELOW THERAPEUTIC [None]
  - CONVULSION [None]
  - PHARMACEUTICAL PRODUCT COMPLAINT [None]
